FAERS Safety Report 7289011-9 (Version None)
Quarter: 2011Q1

REPORT INFORMATION
  Report Type: 
  Country: None (occurrence: None)
  Receive Date: 20110211
  Receipt Date: 20110202
  Transmission Date: 20110831
  Serious: Yes (Other)
  Sender: FDA-Public Use
  Company Number: US-ASTRAZENECA-2011SE00329

PATIENT
  Age: 74 Year
  Sex: Male
  Weight: 78.5 kg

DRUGS (5)
  1. CRESTOR [Suspect]
     Route: 048
  2. BENAZEPRIL HYDROCHLORIDE [Concomitant]
     Route: 048
     Dates: start: 20101123
  3. METOPROLOL TARTRATE [Concomitant]
     Route: 048
     Dates: start: 20101122
  4. LASIX [Concomitant]
     Route: 048
     Dates: start: 20101122
  5. AMLODIPINE BLSYLAE [Concomitant]
     Route: 048
     Dates: start: 20101123

REACTIONS (5)
  - PAIN [None]
  - TRISMUS [None]
  - RHABDOMYOLYSIS [None]
  - PAIN IN EXTREMITY [None]
  - CHROMATURIA [None]
